FAERS Safety Report 23377155 (Version 3)
Quarter: 2025Q2

REPORT INFORMATION
  Report Type: Spontaneous
  Country: AT (occurrence: AT)
  Receive Date: 20240108
  Receipt Date: 20250514
  Transmission Date: 20250716
  Serious: Yes (Hospitalization, Other)
  Sender: CHEPLAPHARM
  Company Number: AT-ROCHE-2718109

PATIENT
  Age: 61 Year
  Sex: Female
  Weight: 80 kg

DRUGS (78)
  1. CAPECITABINE [Suspect]
     Active Substance: CAPECITABINE
     Indication: HER2 positive breast cancer
     Dosage: DAILY DOSE: 3500 MILLIGRAM
     Route: 048
     Dates: start: 20180904, end: 20180910
  2. CAPECITABINE [Suspect]
     Active Substance: CAPECITABINE
     Indication: HER2 positive breast cancer
     Route: 048
     Dates: start: 20190527, end: 201906
  3. CAPECITABINE [Suspect]
     Active Substance: CAPECITABINE
     Indication: HER2 positive breast cancer
     Route: 048
     Dates: start: 20190617, end: 201909
  4. CAPECITABINE [Suspect]
     Active Substance: CAPECITABINE
     Indication: HER2 positive breast cancer
     Route: 048
  5. TRASTUZUMAB [Suspect]
     Active Substance: TRASTUZUMAB
     Indication: HER2 positive breast cancer
     Route: 042
     Dates: start: 20170306, end: 20171121
  6. TRASTUZUMAB [Suspect]
     Active Substance: TRASTUZUMAB
     Indication: HER2 positive breast cancer
     Route: 042
     Dates: start: 20171121
  7. TRASTUZUMAB [Suspect]
     Active Substance: TRASTUZUMAB
     Indication: HER2 positive breast cancer
     Dates: start: 20171212, end: 20180424
  8. TRASTUZUMAB [Suspect]
     Active Substance: TRASTUZUMAB
     Indication: HER2 positive breast cancer
     Dates: start: 20180515
  9. TRASTUZUMAB [Suspect]
     Active Substance: TRASTUZUMAB
     Indication: HER2 positive breast cancer
     Route: 042
     Dates: start: 20180904, end: 20180904
  10. TRASTUZUMAB [Suspect]
     Active Substance: TRASTUZUMAB
     Indication: HER2 positive breast cancer
     Route: 042
     Dates: start: 20181023, end: 20190226
  11. TRASTUZUMAB [Suspect]
     Active Substance: TRASTUZUMAB
     Indication: HER2 positive breast cancer
     Route: 042
     Dates: start: 20190322, end: 20190322
  12. TRASTUZUMAB [Suspect]
     Active Substance: TRASTUZUMAB
     Indication: HER2 positive breast cancer
     Route: 042
     Dates: start: 20190507, end: 20190507
  13. TRASTUZUMAB [Suspect]
     Active Substance: TRASTUZUMAB
     Indication: HER2 positive breast cancer
     Route: 042
     Dates: start: 20190527, end: 20190617
  14. TRASTUZUMAB [Suspect]
     Active Substance: TRASTUZUMAB
     Indication: HER2 positive breast cancer
     Route: 042
     Dates: end: 20190617
  15. LAPATINIB [Suspect]
     Active Substance: LAPATINIB
     Indication: HER2 positive breast cancer
     Dosage: DAILY DOSE: 1000 MILLIGRAM
     Route: 048
     Dates: start: 20181227, end: 20190116
  16. LAPATINIB [Suspect]
     Active Substance: LAPATINIB
     Indication: HER2 positive breast cancer
     Dosage: DAILY DOSE: 750 MILLIGRAM
     Route: 048
     Dates: start: 20190116, end: 20190206
  17. PERTUZUMAB [Suspect]
     Active Substance: PERTUZUMAB
     Indication: HER2 positive breast cancer
     Dosage: DOSE ON: 21/NOV/2017
     Route: 042
     Dates: start: 20170306, end: 20171121
  18. VINORELBINE [Suspect]
     Active Substance: VINORELBINE TARTRATE
     Indication: HER2 positive breast cancer
     Route: 048
     Dates: start: 20170306, end: 20170530
  19. VINORELBINE [Suspect]
     Active Substance: VINORELBINE TARTRATE
     Indication: HER2 positive breast cancer
     Route: 048
     Dates: start: 20170530
  20. VINORELBINE [Suspect]
     Active Substance: VINORELBINE TARTRATE
     Indication: HER2 positive breast cancer
     Route: 048
     Dates: start: 20170627, end: 20170718
  21. ADO-TRASTUZUMAB EMTANSINE [Suspect]
     Active Substance: ADO-TRASTUZUMAB EMTANSINE
     Indication: HER2 positive breast cancer
     Route: 042
     Dates: start: 20171212, end: 20180816
  22. ADO-TRASTUZUMAB EMTANSINE [Suspect]
     Active Substance: ADO-TRASTUZUMAB EMTANSINE
     Indication: HER2 positive breast cancer
     Route: 042
     Dates: start: 20180424
  23. ADO-TRASTUZUMAB EMTANSINE [Suspect]
     Active Substance: ADO-TRASTUZUMAB EMTANSINE
     Indication: HER2 positive breast cancer
     Route: 042
     Dates: start: 20180515
  24. Paspertin [Concomitant]
     Dates: start: 20171212, end: 20190907
  25. LACTULOSE [Concomitant]
     Active Substance: LACTULOSE
     Dates: start: 20171212, end: 20190907
  26. PANTOPRAZOLE SODIUM [Concomitant]
     Active Substance: PANTOPRAZOLE SODIUM
     Dates: start: 20170302
  27. Daflon [Concomitant]
     Dates: end: 20190907
  28. Novalgin [Concomitant]
     Indication: Respiratory tract infection
     Dates: start: 20170327, end: 20191003
  29. Novalgin [Concomitant]
     Indication: Back pain
     Dates: start: 20170327, end: 20191003
  30. Novalgin [Concomitant]
     Indication: Hepatic pain
     Dates: start: 20170327, end: 20191003
  31. Novalgin [Concomitant]
     Indication: Respiratory tract infection
     Dates: start: 20171212, end: 20190907
  32. Novalgin [Concomitant]
     Indication: Back pain
     Dates: start: 20171212, end: 20190907
  33. Novalgin [Concomitant]
     Indication: Hepatic pain
     Dates: start: 20171212, end: 20190907
  34. Novalgin [Concomitant]
     Indication: Respiratory tract infection
     Dates: start: 20190315, end: 20190907
  35. Novalgin [Concomitant]
     Indication: Back pain
     Dates: start: 20190315, end: 20190907
  36. Novalgin [Concomitant]
     Indication: Hepatic pain
     Dates: start: 20190315, end: 20190907
  37. Novalgin [Concomitant]
     Indication: Respiratory tract infection
     Dates: start: 20190509, end: 20190509
  38. Novalgin [Concomitant]
     Indication: Back pain
     Dates: start: 20190509, end: 20190509
  39. Novalgin [Concomitant]
     Indication: Hepatic pain
     Dates: start: 20190509, end: 20190509
  40. HYDROMORPHONE HYDROCHLORIDE [Concomitant]
     Active Substance: HYDROMORPHONE HYDROCHLORIDE
     Indication: Back pain
     Dates: start: 20180628, end: 20190226
  41. HYDROMORPHONE HYDROCHLORIDE [Concomitant]
     Active Substance: HYDROMORPHONE HYDROCHLORIDE
     Indication: Back pain
     Dates: start: 20181227, end: 20190907
  42. ZOLPIDEM [Concomitant]
     Active Substance: ZOLPIDEM TARTRATE
     Dates: start: 20190215, end: 20190315
  43. TRAZODONE HYDROCHLORIDE [Concomitant]
     Active Substance: TRAZODONE HYDROCHLORIDE
     Dates: start: 20181215, end: 20190226
  44. LYRICA [Concomitant]
     Active Substance: PREGABALIN
     Indication: Back pain
     Dates: start: 20181227, end: 20190226
  45. BISOPROLOL FUMARATE [Concomitant]
     Active Substance: BISOPROLOL FUMARATE
     Dates: end: 20190907
  46. LASIX [Concomitant]
     Active Substance: FUROSEMIDE
     Dates: end: 20190907
  47. SUCRALFATE [Concomitant]
     Active Substance: SUCRALFATE
     Dates: end: 20190907
  48. BAMBUTEROL HYDROCHLORIDE [Concomitant]
     Active Substance: BAMBUTEROL HYDROCHLORIDE
  49. BUPRENORPHINE [Concomitant]
     Active Substance: BUPRENORPHINE
  50. Kalioral [Concomitant]
  51. KYTRIL [Concomitant]
     Active Substance: GRANISETRON HYDROCHLORIDE
     Dates: start: 20171212, end: 20181013
  52. EMEND [Concomitant]
     Active Substance: APREPITANT
     Dates: start: 20180127, end: 20180813
  53. EMEND [Concomitant]
     Active Substance: APREPITANT
     Dates: start: 20180128, end: 20180814
  54. EMEND [Concomitant]
     Active Substance: APREPITANT
     Dates: start: 20180129, end: 20180815
  55. DEXAMETHASONE [Concomitant]
     Active Substance: DEXAMETHASONE
     Dates: start: 20170829, end: 20180813
  56. DEXAMETHASONE [Concomitant]
     Active Substance: DEXAMETHASONE
     Dates: start: 20190215, end: 20190215
  57. Temesta [Concomitant]
     Dates: start: 20190226
  58. MIRTAZAPINE [Concomitant]
     Active Substance: MIRTAZAPINE
     Dates: start: 20190315, end: 20190907
  59. MIRTAZAPINE [Concomitant]
     Active Substance: MIRTAZAPINE
     Dates: start: 20190315
  60. VENLAFAXINE HYDROCHLORIDE [Concomitant]
     Active Substance: VENLAFAXINE HYDROCHLORIDE
     Dates: start: 20190315, end: 20190907
  61. EDOXABAN TOSYLATE [Concomitant]
     Active Substance: EDOXABAN TOSYLATE
     Indication: Pulmonary embolism
     Dates: start: 20190315, end: 20190907
  62. EDOXABAN TOSYLATE [Concomitant]
     Active Substance: EDOXABAN TOSYLATE
     Indication: Pulmonary embolism
     Dates: start: 20190315
  63. DOXYCYCLINE [Concomitant]
     Active Substance: DOXYCYCLINE
     Indication: Respiratory tract infection
     Dates: start: 20190502, end: 20190509
  64. AMOXICILLIN\CLAVULANATE POTASSIUM [Concomitant]
     Active Substance: AMOXICILLIN\CLAVULANATE POTASSIUM
     Indication: Respiratory tract infection
     Dates: start: 20190509, end: 20190516
  65. Cortison [Concomitant]
     Indication: Respiratory tract infection
     Dates: start: 20190615, end: 20190615
  66. Paracodin [Concomitant]
     Indication: Dyspnoea
     Dates: start: 20190510
  67. ACETAMINOPHEN [Concomitant]
     Active Substance: ACETAMINOPHEN
  68. PREDNISOLONE SODIUM SUCCINATE [Concomitant]
     Active Substance: PREDNISOLONE SODIUM SUCCINATE
     Indication: Chills
  69. DIMETHINDENE [Concomitant]
     Active Substance: DIMETHINDENE
     Indication: Chills
  70. RANITIDINE HYDROCHLORIDE [Concomitant]
     Active Substance: RANITIDINE HYDROCHLORIDE
     Indication: Chills
  71. LAPATINIB DITOSYLATE [Concomitant]
     Active Substance: LAPATINIB DITOSYLATE
     Dosage: DAILY DOSE: 1000 MILLIGRAM
     Route: 048
     Dates: start: 20181227, end: 20190116
  72. LAPATINIB DITOSYLATE [Concomitant]
     Active Substance: LAPATINIB DITOSYLATE
     Dosage: DAILY DOSE: 750 MILLIGRAM
     Route: 048
     Dates: start: 20190116, end: 20190206
  73. ZYRTEC [Concomitant]
     Active Substance: CETIRIZINE HYDROCHLORIDE
  74. BUPRENORPHINE HYDROCHLORIDE [Concomitant]
     Active Substance: BUPRENORPHINE HYDROCHLORIDE
  75. MORPHINE [Concomitant]
     Active Substance: MORPHINE
  76. LOVENOX [Concomitant]
     Active Substance: ENOXAPARIN SODIUM
     Dates: start: 20180126, end: 20180208
  77. DIFLUCAN [Concomitant]
     Active Substance: FLUCONAZOLE
  78. DICLOFENAC SODIUM\ORPHENADRINE CITRATE [Concomitant]
     Active Substance: DICLOFENAC SODIUM\ORPHENADRINE CITRATE

REACTIONS (12)
  - Polyneuropathy [Recovered/Resolved]
  - Polyneuropathy [Not Recovered/Not Resolved]
  - Headache [Recovered/Resolved]
  - Headache [Unknown]
  - Headache [Recovered/Resolved]
  - Angina pectoris [Recovered/Resolved]
  - Vertigo [Recovered/Resolved]
  - Vertigo [Not Recovered/Not Resolved]
  - Vomiting [Recovered/Resolved]
  - Diarrhoea [Recovered/Resolved]
  - Blindness [Recovered/Resolved with Sequelae]
  - Visual impairment [Not Recovered/Not Resolved]

NARRATIVE: CASE EVENT DATE: 20180904
